FAERS Safety Report 18814391 (Version 1)
Quarter: 2021Q1

REPORT INFORMATION
  Report Type: Spontaneous
  Country: US (occurrence: US)
  Receive Date: 20210201
  Receipt Date: 20210201
  Transmission Date: 20210419
  Serious: Yes (Other)
  Sender: FDA-Public Use
  Company Number: US-SUN PHARMACEUTICAL INDUSTRIES LTD-2021R1-276907

PATIENT
  Age: 21 Year
  Sex: Female

DRUGS (8)
  1. MAGNESIUM SULFATE. [Suspect]
     Active Substance: MAGNESIUM SULFATE
     Indication: NERVOUS SYSTEM DISORDER
     Dosage: UNK
     Route: 065
  2. TERBUTALINE [Suspect]
     Active Substance: TERBUTALINE
     Indication: INTRAOPERATIVE CARE
     Dosage: 0.2 MCG
     Route: 065
  3. NIFEDIPINE. [Suspect]
     Active Substance: NIFEDIPINE
     Indication: PRODUCT USED FOR UNKNOWN INDICATION
     Dosage: 20 MILLIGRAM, QID
     Route: 048
  4. AMPICILLIN [Suspect]
     Active Substance: AMPICILLIN
     Indication: PRETERM PREMATURE RUPTURE OF MEMBRANES
     Dosage: 2 GRAM, QID
     Route: 042
  5. CEFOXITIN [Suspect]
     Active Substance: CEFOXITIN SODIUM
     Indication: PRODUCT USED FOR UNKNOWN INDICATION
     Dosage: UNK
     Route: 065
  6. INDOMETHACIN. [Suspect]
     Active Substance: INDOMETHACIN
     Dosage: 25 MILLIGRAM, QID
     Route: 048
  7. INDOMETHACIN. [Suspect]
     Active Substance: INDOMETHACIN
     Indication: PRODUCT USED FOR UNKNOWN INDICATION
     Dosage: 50 MILLIGRAM, QID
     Route: 048
  8. ERYTHROMYCIN. [Suspect]
     Active Substance: ERYTHROMYCIN
     Indication: PRETERM PREMATURE RUPTURE OF MEMBRANES
     Dosage: 250 GRAM, QID
     Route: 042

REACTIONS (2)
  - Exposure during pregnancy [Unknown]
  - Premature delivery [Unknown]
